FAERS Safety Report 11728845 (Version 3)
Quarter: 2015Q4

REPORT INFORMATION
  Report Type: Spontaneous
  Country: US (occurrence: US)
  Receive Date: 20151112
  Receipt Date: 20151217
  Transmission Date: 20160304
  Serious: Yes (Hospitalization, Other)
  Sender: FDA-Public Use
  Company Number: US-BAYER-2015-398687

PATIENT
  Age: 76 Year
  Sex: Female
  Weight: 88.91 kg

DRUGS (3)
  1. XARELTO [Suspect]
     Active Substance: RIVAROXABAN
     Indication: THROMBOSIS PROPHYLAXIS
     Dosage: 40 MG, UNK
     Route: 048
  2. ACETYLSALICYLIC ACID({=100 MG) [Suspect]
     Active Substance: ASPIRIN
     Indication: PRODUCT USED FOR UNKNOWN INDICATION
     Dosage: 81 MG, UNK
     Route: 065
     Dates: end: 20130930
  3. XARELTO [Suspect]
     Active Substance: RIVAROXABAN
     Indication: THROMBOSIS PROPHYLAXIS
     Dosage: 40 MG, UNK
     Route: 048
     Dates: start: 20130422, end: 20130930

REACTIONS (7)
  - Respiratory failure [Unknown]
  - Gastrointestinal haemorrhage [Unknown]
  - Anaemia [Recovered/Resolved]
  - Epistaxis [Unknown]
  - Internal haemorrhage [Unknown]
  - Rectal haemorrhage [Unknown]
  - Intestinal ulcer [Unknown]

NARRATIVE: CASE EVENT DATE: 20130930
